FAERS Safety Report 15017918 (Version 4)
Quarter: 2018Q3

REPORT INFORMATION
  Report Type: Spontaneous
  Country: RU (occurrence: RU)
  Receive Date: 20180615
  Receipt Date: 20180920
  Transmission Date: 20181010
  Serious: Yes (Hospitalization, Other)
  Sender: FDA-Public Use
  Company Number: RU-ASTRAZENECA-2018SE04506

PATIENT
  Age: 60 Year
  Sex: Male
  Weight: 98 kg

DRUGS (11)
  1. LOSARTAN. [Concomitant]
     Active Substance: LOSARTAN
  2. ATORIS [Concomitant]
     Active Substance: ATORVASTATIN CALCIUM
  3. CARDIOMAGNYL [Concomitant]
     Active Substance: ASPIRIN\MAGNESIUM HYDROXIDE
  4. PREDUCTAL A [Concomitant]
  5. BRILINTA [Suspect]
     Active Substance: TICAGRELOR
     Indication: MYOCARDIAL INFARCTION
     Route: 048
     Dates: start: 20171205
  6. CONCOR [Concomitant]
     Active Substance: BISOPROLOL FUMARATE
  7. NOLPAZA [Concomitant]
     Active Substance: PANTOPRAZOLE SODIUM
  8. INSULIN [Concomitant]
     Active Substance: INSULIN NOS
  9. GLIFORMIN [Concomitant]
  10. BRILINTA [Suspect]
     Active Substance: TICAGRELOR
     Indication: MYOCARDIAL INFARCTION
     Route: 048
     Dates: start: 20171203
  11. TRIGRIM [Concomitant]

REACTIONS (7)
  - Dyspnoea exertional [Not Recovered/Not Resolved]
  - Cough [Recovered/Resolved]
  - Lymphadenitis [Unknown]
  - Neuralgia [Unknown]
  - Secretion discharge [Not Recovered/Not Resolved]
  - Oedema peripheral [Not Recovered/Not Resolved]
  - Arrhythmia [Recovered/Resolved]

NARRATIVE: CASE EVENT DATE: 201712
